FAERS Safety Report 6786519-7 (Version None)
Quarter: 2010Q2

REPORT INFORMATION
  Report Type: 
  Country: None (occurrence: None)
  Receive Date: 20100623
  Receipt Date: 20100618
  Transmission Date: 20101027
  Serious: Yes (Hospitalization, Other)
  Sender: FDA-Public Use
  Company Number: Z0002797A

PATIENT
  Age: 65 Year
  Sex: Male
  Weight: 78 kg

DRUGS (2)
  1. PAZOPANIB [Suspect]
     Indication: RENAL CELL CARCINOMA
     Dosage: 800MG PER DAY
     Route: 048
     Dates: start: 20091015
  2. PERCOCET [Concomitant]
     Indication: PAIN
     Dosage: 5MG FOUR TIMES PER DAY
     Route: 048
     Dates: start: 20100111, end: 20100219

REACTIONS (2)
  - DEHYDRATION [None]
  - HYPONATRAEMIA [None]
